FAERS Safety Report 7509582-4 (Version None)
Quarter: 2011Q2

REPORT INFORMATION
  Report Type: 
  Country: None (occurrence: None)
  Receive Date: 20110527
  Receipt Date: 20110523
  Transmission Date: 20111010
  Serious: Yes (Hospitalization)
  Sender: FDA-Public Use
  Company Number: BR-MEDIMMUNE-MEDI-0013238

PATIENT
  Sex: Female
  Weight: 5.4 kg

DRUGS (7)
  1. SYNAGIS [Suspect]
     Indication: CARDIAC DISORDER
  2. SYNAGIS [Suspect]
     Route: 030
     Dates: start: 20110420, end: 20110420
  3. FUROSEMIDE [Concomitant]
     Dosage: 1.5 ML, 0.5 TAB IN 10 ML
     Route: 048
     Dates: start: 20110220
  4. AMIODARONE HCL [Concomitant]
     Dosage: 1 ML, 0.5 TAB IN 10 ML
     Route: 048
     Dates: start: 20110220
  5. PREDNISOLONE [Concomitant]
     Route: 048
     Dates: start: 20110410, end: 20110413
  6. RANITIDINE [Concomitant]
     Route: 048
     Dates: start: 20110410, end: 20110425
  7. CAPTOPRIL [Concomitant]
     Dosage: 1 ML, 0.5 TAB IN 10 ML OF WATER
     Route: 048
     Dates: start: 20110220

REACTIONS (4)
  - DYSPNOEA [None]
  - PNEUMONIA [None]
  - LARYNGITIS [None]
  - OXYGEN SATURATION DECREASED [None]
